FAERS Safety Report 16584918 (Version 1)
Quarter: 2019Q3

REPORT INFORMATION
  Report Type: Report from Study
  Country: DE (occurrence: DE)
  Receive Date: 20190717
  Receipt Date: 20190717
  Transmission Date: 20191004
  Serious: Yes (Hospitalization, Other)
  Sender: FDA-Public Use
  Company Number: DE-MYLANLABS-2019M1066542

PATIENT
  Age: 60 Year
  Sex: Female
  Weight: 72 kg

DRUGS (8)
  1. TRASTUZUMAB. [Suspect]
     Active Substance: TRASTUZUMAB
     Dosage: 468 MILLIGRAM, Q3W
     Route: 042
     Dates: start: 20131009, end: 20131120
  2. TRASTUZUMAB. [Suspect]
     Active Substance: TRASTUZUMAB
     Dosage: 460 MILLIGRAM, Q3W
     Route: 042
     Dates: start: 20131211, end: 20140508
  3. PERTUZUMAB. [Suspect]
     Active Substance: PERTUZUMAB
     Indication: HER-2 POSITIVE BREAST CANCER
     Dosage: 840 MILLIGRAM, Q3W
     Route: 042
     Dates: start: 20130918, end: 20130918
  4. DOCETAXEL. [Concomitant]
     Active Substance: DOCETAXEL
     Indication: HER-2 POSITIVE BREAST CANCER
     Dosage: 142 MILLIGRAM, Q3W
     Route: 042
     Dates: start: 20130918, end: 20131211
  5. DOCETAXEL. [Concomitant]
     Active Substance: DOCETAXEL
     Dosage: 139 MILLIGRAM, Q3W
     Route: 042
     Dates: start: 20140102, end: 20140924
  6. PERTUZUMAB. [Suspect]
     Active Substance: PERTUZUMAB
     Dosage: 420 MILLIGRAM, Q3W
     Route: 042
     Dates: start: 20131009
  7. TRASTUZUMAB. [Suspect]
     Active Substance: TRASTUZUMAB
     Indication: HER-2 POSITIVE BREAST CANCER
     Dosage: 624 MILLIGRAM
     Route: 042
     Dates: start: 20130918, end: 20130918
  8. TRASTUZUMAB. [Suspect]
     Active Substance: TRASTUZUMAB
     Dosage: 432 MILLIGRAM, Q3W
     Route: 042
     Dates: start: 20140530

REACTIONS (2)
  - Pathological fracture [Recovered/Resolved]
  - Osteolysis [Not Recovered/Not Resolved]

NARRATIVE: CASE EVENT DATE: 20141017
